FAERS Safety Report 4974439-X (Version None)
Quarter: 2006Q2

REPORT INFORMATION
  Report Type: 
  Country: None (occurrence: None)
  Receive Date: 20060417
  Receipt Date: 20050301
  Transmission Date: 20061013
  Serious: Yes (Hospitalization)
  Sender: FDA-Public Use
  Company Number: DE-BRISTOL-MYERS SQUIBB COMPANY-13342092

PATIENT
  Sex: Male
  Weight: 89 kg

DRUGS (11)
  1. ZERIT [Suspect]
     Indication: HIV INFECTION
     Dosage: THERAPY: 2001 TO JUN-2002, JUN-2002 TO SEP-2003, OCT-2003, 2003/2004.
     Dates: start: 20010101
  2. VIDEX [Suspect]
     Indication: HIV INFECTION
     Dosage: THERAPY: 2001 TO JUN-2002, JUN-2002 TO SEP-2003, OCT-2003, 2003/2004.
     Dates: start: 20010101
  3. TENOFOVIR [Concomitant]
     Indication: HIV INFECTION
     Dosage: THERAPY: 2001 TO JUN-2002, JUN-2002 TO SEP-2003, OCT-2003, 2003/2004.
     Dates: start: 20010101, end: 20030901
  4. LAMIVUDINE [Concomitant]
     Indication: HIV INFECTION
     Dosage: THERAPY: 2001 TO JUN-2002, JUN-2002 TO SEP-2003.
     Dates: start: 20010101, end: 20030901
  5. ZIDOVUDINE [Concomitant]
     Indication: HIV INFECTION
     Dosage: THERAPY: 2001 TO JUN-2002, JUN-2002 TO SEP-2003.
     Dates: start: 20010101, end: 20030901
  6. INDINIVIR SULFATE [Concomitant]
     Indication: HIV INFECTION
     Dosage: THERAPY: 2001 TO JUN-2002, JUN-2002 TO SEP-2003.
     Dates: start: 20010101, end: 20030901
  7. RITONAVIR [Concomitant]
     Indication: HIV INFECTION
     Dosage: THERAPY: 2001 TO JUN-2002, JUN-2002 TO SEP-2003.
     Dates: start: 20010101, end: 20030901
  8. NEVIRAPINE [Concomitant]
     Indication: HIV INFECTION
     Dosage: THERAPY: OCT-2003, 2003/2004.
     Dates: start: 20031001
  9. CO-TRIMOXAZOLE [Concomitant]
     Indication: ANTIBIOTIC PROPHYLAXIS
     Dates: start: 20010601
  10. PEGASYS [Concomitant]
     Indication: HEPATITIS
     Dosage: THERAPY: SEP-2003 INTERRUPTED IN 2004, RESTARTED JUN-2004
     Dates: start: 20030901
  11. RIBAVIRIN [Concomitant]
     Indication: HEPATITIS
     Dates: start: 20030901

REACTIONS (5)
  - HEPATITIS [None]
  - HEPATITIS TOXIC [None]
  - MULTIPLE-DRUG RESISTANCE [None]
  - MYALGIA [None]
  - RALES [None]
